FAERS Safety Report 13660394 (Version 1)
Quarter: 2017Q2

REPORT INFORMATION
  Report Type: Spontaneous
  Country: US (occurrence: US)
  Receive Date: 20170615
  Receipt Date: 20170615
  Transmission Date: 20170830
  Serious: Yes (Hospitalization)
  Sender: FDA-Public Use
  Company Number: None

PATIENT
  Age: 60 Year
  Sex: Male
  Weight: 60.8 kg

DRUGS (10)
  1. DOCUSATE [Concomitant]
     Active Substance: DOCUSATE
  2. FENTANYL. [Concomitant]
     Active Substance: FENTANYL
  3. POLYETHYLENE [Concomitant]
     Active Substance: HIGH DENSITY POLYETHYLENE
  4. MYCOPHENALATE [Concomitant]
     Active Substance: MYCOPHENOLIC ACID
  5. AMLODIPINE [Concomitant]
     Active Substance: AMLODIPINE BESYLATE
  6. SOVALDI [Suspect]
     Active Substance: SOFOSBUVIR
     Indication: HEPATITIS C
     Route: 048
     Dates: start: 20170109, end: 20170410
  7. TACROLIMUS. [Concomitant]
     Active Substance: TACROLIMUS
  8. DAKLINZA [Suspect]
     Active Substance: DACLATASVIR
     Indication: HEPATITIS C
     Route: 048
     Dates: start: 20170109, end: 20170410
  9. NEPHRO-VITE [Concomitant]
  10. OXYCODONE [Concomitant]
     Active Substance: OXYCODONE

REACTIONS (2)
  - Anaemia [None]
  - Occult blood positive [None]

NARRATIVE: CASE EVENT DATE: 20170405
